FAERS Safety Report 7583514-5 (Version None)
Quarter: 2011Q2

REPORT INFORMATION
  Report Type: 
  Country: None (occurrence: None)
  Receive Date: 20110630
  Receipt Date: 20110614
  Transmission Date: 20111010
  Serious: Yes (Hospitalization)
  Sender: FDA-Public Use
  Company Number: US-BAYER-201041461NA

PATIENT
  Sex: Female
  Weight: 81.633 kg

DRUGS (17)
  1. YASMIN [Suspect]
     Indication: ACNE
  2. DARVOCET [Concomitant]
  3. DROSPIRENONE AND ETHINYL ESTRADIOL [Suspect]
     Indication: ACNE
  4. YASMIN [Suspect]
     Indication: PREMENSTRUAL SYNDROME
  5. YAZ [Suspect]
     Indication: ACNE
  6. WELLBUTRIN [Concomitant]
  7. DROSPIRENONE AND ETHINYL ESTRADIOL [Suspect]
     Indication: PREMENSTRUAL SYNDROME
  8. AMILORIDE HYDROCHLORIDE [Concomitant]
     Dosage: 5 MG, UNK
  9. FLEXERIL [Concomitant]
  10. NSAID'S [Concomitant]
  11. ZANTAC [Concomitant]
  12. MOTRIN [Concomitant]
  13. XANAX [Concomitant]
  14. YAZ [Suspect]
     Indication: PREMENSTRUAL SYNDROME
  15. LIPITOR [Concomitant]
  16. DIURETICS [Concomitant]
  17. POTASSIUM [Concomitant]

REACTIONS (5)
  - ARRHYTHMIA [None]
  - TRANSIENT ISCHAEMIC ATTACK [None]
  - MENTAL DISORDER [None]
  - BLOOD POTASSIUM ABNORMAL [None]
  - GALLBLADDER DISORDER [None]
